FAERS Safety Report 8580296-5 (Version None)
Quarter: 2012Q3

REPORT INFORMATION
  Report Type: 
  Country: None (occurrence: None)
  Receive Date: 20120801
  Receipt Date: 20120801
  Transmission Date: 20120928
  Serious: Yes (Other)
  Sender: FDA-Public Use
  Company Number: None

PATIENT
  Sex: Female
  Weight: 63.5036 kg

DRUGS (2)
  1. CLOPIDOGREL [Suspect]
     Indication: BLOOD FIBRINOGEN
     Dosage: 75 MG BID P.O.
     Route: 048
     Dates: start: 20120610, end: 20120710
  2. CLOPIDOGREL [Suspect]
     Indication: HOMOCYSTINURIA
     Dosage: 75 MG BID P.O.
     Route: 048
     Dates: start: 20120610, end: 20120710

REACTIONS (6)
  - PRODUCT SUBSTITUTION ISSUE [None]
  - HYPOCOAGULABLE STATE [None]
  - CONDITION AGGRAVATED [None]
  - SCAR [None]
  - HAEMORRHAGE [None]
  - INJURY [None]
